FAERS Safety Report 23913299 (Version 1)
Quarter: 2024Q2

REPORT INFORMATION
  Report Type: Spontaneous
  Country: US (occurrence: US)
  Receive Date: 20240529
  Receipt Date: 20240529
  Transmission Date: 20240716
  Serious: Yes (Hospitalization)
  Sender: FDA-Public Use
  Company Number: US-TEVA-VS-3201498

PATIENT
  Age: 39 Year
  Sex: Female

DRUGS (1)
  1. VESTURA [Suspect]
     Active Substance: DROSPIRENONE\ETHINYL ESTRADIOL
     Indication: Prophylaxis
     Dosage: 3-0.02 MG-MG)
     Route: 065
     Dates: start: 202404, end: 202405

REACTIONS (2)
  - Pulmonary embolism [Unknown]
  - Pain [Unknown]

NARRATIVE: CASE EVENT DATE: 20240101
